FAERS Safety Report 4708601-8 (Version None)
Quarter: 2005Q3

REPORT INFORMATION
  Report Type: 
  Country: None (occurrence: None)
  Receive Date: 20050706
  Receipt Date: 20050627
  Transmission Date: 20060218
  Serious: Yes (Hospitalization)
  Sender: FDA-Public Use
  Company Number: 2005-130056-NL

PATIENT
  Age: 61 Year
  Sex: Male

DRUGS (5)
  1. DEXAMETHASONE [Suspect]
     Indication: COLORECTAL CANCER
     Dosage: DF INTRAVENOUS (NOS)
     Route: 042
  2. IRINOTECAN [Suspect]
     Indication: COLORECTAL CANCER
     Dosage: 250 MG INTRAVENOUS (NOS)
     Route: 042
     Dates: start: 20050506
  3. FLUOROURACIL [Suspect]
     Indication: COLORECTAL CANCER
     Dosage: DF INTRAVENOUS (NOS)
     Route: 042
  4. CALCIUM FOLINATE [Suspect]
     Indication: COLORECTAL CANCER
     Dosage: DF INTRAVENOUS (NOS)
     Route: 042
  5. ONDANSETRON [Suspect]
     Indication: COLORECTAL CANCER
     Dosage: DF INTRAVENOUS (NOS)
     Route: 042

REACTIONS (1)
  - MYOCARDIAL INFARCTION [None]
